FAERS Safety Report 9847190 (Version 3)
Quarter: 2014Q1

REPORT INFORMATION
  Report Type: Report from Study
  Country: JP (occurrence: JP)
  Receive Date: 20140127
  Receipt Date: 20140210
  Transmission Date: 20141002
  Serious: Yes (Hospitalization)
  Sender: FDA-Public Use
  Company Number: JP-ASTRAZENECA-2014SE05436

PATIENT
  Age: 28916 Day
  Sex: Male
  Weight: 70 kg

DRUGS (9)
  1. ZOLADEX [Suspect]
     Indication: PROSTATE CANCER
     Route: 058
     Dates: start: 20131125, end: 20131223
  2. ZOLADEX [Suspect]
     Indication: PROSTATE CANCER
     Route: 058
     Dates: start: 20131224
  3. NIFEDIPINE CR [Concomitant]
     Indication: HYPERTENSION
     Route: 048
  4. CARVEDILOL [Concomitant]
     Indication: HYPERTENSION
     Route: 048
  5. BAYASPIRIN [Concomitant]
     Indication: EMBOLISM
     Dosage: 100 MG IN THE MORNING AND EARLY EVENING
     Route: 048
  6. CARBADOGEN [Concomitant]
     Indication: HYPERTENSION
     Dosage: 1 MG IN THE MORNING AND EARLY EVENING
     Route: 048
  7. MAGMITT [Concomitant]
     Indication: CONSTIPATION
     Route: 048
  8. DAIKENCHUTO [Concomitant]
     Indication: CONSTIPATION
     Route: 048
  9. LIVALO [Concomitant]
     Indication: HYPERLIPIDAEMIA
     Dosage: 2 MG IN THE EARLY EVENING
     Route: 048

REACTIONS (1)
  - Ileus [Recovered/Resolved]
